FAERS Safety Report 9893543 (Version 1)
Quarter: 2014Q1

REPORT INFORMATION
  Report Type: Report from Study
  Country: BR (occurrence: BR)
  Receive Date: 20140213
  Receipt Date: 20140213
  Transmission Date: 20141002
  Serious: Yes (Other)
  Sender: FDA-Public Use
  Company Number: PHHY2014BR015670

PATIENT
  Sex: Male
  Weight: 73 kg

DRUGS (6)
  1. ACLASTA [Suspect]
     Indication: OSTEOPOROSIS
     Dosage: 5 MG
     Route: 042
     Dates: start: 201208
  2. ACLASTA [Suspect]
     Dosage: 5 MG
     Route: 042
     Dates: start: 201308
  3. CALCIUM [Suspect]
     Dosage: UNK
  4. MULTIVITAMIN//VITAMINS NOS [Suspect]
     Dosage: UNK
  5. SIMVASTATIN [Concomitant]
     Indication: BLOOD CHOLESTEROL INCREASED
     Dosage: UNK
     Dates: start: 2013
  6. LIPITOR [Concomitant]
     Dosage: UNK

REACTIONS (4)
  - Hepatic neoplasm [Recovering/Resolving]
  - Liver disorder [Recovering/Resolving]
  - Hepatic pain [Recovering/Resolving]
  - Bone density decreased [Unknown]
